FAERS Safety Report 10176041 (Version 2)
Quarter: 2014Q2

REPORT INFORMATION
  Report Type: Spontaneous
  Country: DE (occurrence: DE)
  Receive Date: 20140516
  Receipt Date: 20140516
  Transmission Date: 20141212
  Serious: Yes (Life-Threatening, Hospitalization)
  Sender: FDA-Public Use
  Company Number: PHHY2014DE019682

PATIENT
  Age: 41 Year
  Sex: Female
  Weight: 68 kg

DRUGS (3)
  1. GILENYA [Suspect]
     Indication: RELAPSING-REMITTING MULTIPLE SCLEROSIS
     Dosage: 0.5 MG, QD
     Route: 048
     Dates: start: 20131213, end: 20140207
  2. BACLOFEN [Concomitant]
     Indication: MUSCLE SPASTICITY
     Dosage: 25 MG, TID
     Route: 048
  3. LIMPTAR [Concomitant]
     Dosage: 200 MG, QD

REACTIONS (22)
  - Sepsis [Not Recovered/Not Resolved]
  - Bacteraemia [Unknown]
  - Acinetobacter infection [Not Recovered/Not Resolved]
  - Tachycardia [Unknown]
  - Pyrexia [Unknown]
  - Pneumonia [Not Recovered/Not Resolved]
  - Hypopnoea [Unknown]
  - Fatigue [Unknown]
  - Vomiting [Unknown]
  - Nausea [Unknown]
  - Neutropenia [Not Recovered/Not Resolved]
  - Leukopenia [Not Recovered/Not Resolved]
  - Central nervous system lesion [Unknown]
  - Dysarthria [Unknown]
  - Lhermitte^s sign [Unknown]
  - Extensor plantar response [Unknown]
  - Paralysis [Unknown]
  - Hypoaesthesia [Unknown]
  - Uhthoff^s phenomenon [Unknown]
  - Gamma-glutamyltransferase increased [Unknown]
  - Aspartate aminotransferase increased [Unknown]
  - Alanine aminotransferase increased [Unknown]
